FAERS Safety Report 24396110 (Version 5)
Quarter: 2025Q1

REPORT INFORMATION
  Report Type: Report from Study
  Country: US (occurrence: US)
  Receive Date: 20241004
  Receipt Date: 20250224
  Transmission Date: 20250409
  Serious: Yes (Other)
  Sender: ABBVIE
  Company Number: US-ABBVIE-5899530

PATIENT
  Age: 80 Year
  Sex: Male
  Weight: 68 kg

DRUGS (2)
  1. RINVOQ [Suspect]
     Active Substance: UPADACITINIB
     Indication: Colitis ulcerative
     Route: 048
     Dates: start: 20231012
  2. PREDNISONE [Concomitant]
     Active Substance: PREDNISONE
     Indication: Product used for unknown indication

REACTIONS (10)
  - Transient ischaemic attack [Recovered/Resolved]
  - Bowel movement irregularity [Unknown]
  - Walking aid user [Unknown]
  - Sciatic nerve neuropathy [Unknown]
  - Poor quality sleep [Recovering/Resolving]
  - Arthropathy [Unknown]
  - Arthritis [Unknown]
  - Movement disorder [Recovered/Resolved]
  - Aphasia [Recovered/Resolved]
  - Arthralgia [Unknown]

NARRATIVE: CASE EVENT DATE: 20240826
